FAERS Safety Report 14067536 (Version 1)
Quarter: 2017Q4

REPORT INFORMATION
  Report Type: Not Available
  Country: US (occurrence: US)
  Receive Date: 20171009
  Receipt Date: 20171009
  Transmission Date: 20180321
  Serious: No
  Sender: FDA-Public Use
  Company Number: US-ANIPHARMA-2017-US-008866

PATIENT
  Age: 56 Year
  Sex: Male

DRUGS (1)
  1. ETODOLAC (NON-SPECIFIC) [Suspect]
     Active Substance: ETODOLAC

REACTIONS (1)
  - Hypersensitivity [Unknown]
